FAERS Safety Report 8129823-2 (Version None)
Quarter: 2012Q1

REPORT INFORMATION
  Report Type: 
  Country: None (occurrence: None)
  Receive Date: 20120210
  Receipt Date: 20120210
  Transmission Date: 20120608
  Serious: Yes (Life-Threatening, Hospitalization)
  Sender: FDA-Public Use
  Company Number: None

PATIENT
  Sex: Female

DRUGS (1)
  1. PRADAXA [Suspect]
     Indication: ATRIAL FIBRILLATION
     Dosage: 150 MG
     Route: 048

REACTIONS (7)
  - URINARY TRACT INFECTION [None]
  - NAUSEA [None]
  - DIVERTICULITIS [None]
  - VOMITING [None]
  - PAIN [None]
  - MELAENA [None]
  - ABDOMINAL PAIN [None]
